FAERS Safety Report 4602363-0 (Version None)
Quarter: 2005Q1

REPORT INFORMATION
  Report Type: 
  Country: None (occurrence: None)
  Receive Date: 20050307
  Receipt Date: 20050223
  Transmission Date: 20050727
  Serious: Yes (Hospitalization, Other)
  Sender: FDA-Public Use
  Company Number: 2005024003

PATIENT
  Age: 81 Year
  Sex: Female
  Weight: 74.8435 kg

DRUGS (5)
  1. LIPITOR [Suspect]
     Indication: BLOOD CHOLESTEROL INCREASED
     Dosage: (10 MG), ORAL
     Route: 048
     Dates: start: 19990701, end: 20030101
  2. ATENOLOL [Concomitant]
  3. OMEPRAZOLE [Concomitant]
  4. ASPIRIN [Concomitant]
  5. IBUPROFEN [Concomitant]

REACTIONS (8)
  - ARTERIAL DISORDER [None]
  - CHEST PAIN [None]
  - CHONDROCALCINOSIS PYROPHOSPHATE [None]
  - ENDOMETRIAL CANCER [None]
  - MYALGIA [None]
  - PAIN IN EXTREMITY [None]
  - UTERINE CANCER [None]
  - VAGINAL HAEMORRHAGE [None]
